FAERS Safety Report 4530407-3 (Version None)
Quarter: 2004Q4

REPORT INFORMATION
  Report Type: 
  Country: None (occurrence: None)
  Receive Date: 20041215
  Receipt Date: 20041207
  Transmission Date: 20050328
  Serious: Yes (Hospitalization)
  Sender: FDA-Public Use
  Company Number: A001-319-733

PATIENT
  Age: 76 Year
  Sex: Female
  Weight: 75 kg

DRUGS (17)
  1. PLACEBO [Suspect]
     Indication: VASCULAR DEMENTIA
     Dosage: PLACEBO, 1 IN 1 D, ORAL
     Route: 048
     Dates: start: 20040929
  2. CARTIA XL (DILTIAZEM) [Suspect]
     Indication: HYPERTENSION
     Dosage: 300 MG, ORAL
     Route: 048
     Dates: start: 20040125
  3. METOPROLOL TARTRATE [Suspect]
     Dosage: 200 MG, ORAL
     Route: 048
     Dates: start: 20000417
  4. ALBUTEROL [Concomitant]
  5. ENTERIC ASPIRIN (ACETYLSALICYLIC ACID) [Concomitant]
  6. CALCIUM (CALCIUM) [Concomitant]
  7. CARBAMAZEPINE [Concomitant]
  8. DIGOXIN [Concomitant]
  9. KLOR-CON [Concomitant]
  10. FUROSEMIDE [Concomitant]
  11. MULTIVITAMIN [Concomitant]
  12. NITRO-DUR [Concomitant]
  13. PROTONIX [Concomitant]
  14. NEURONTIN [Concomitant]
  15. EXTRA STRENGTH TYLENOL [Concomitant]
  16. SEPTRA [Concomitant]
  17. FERROUS SULFATE TAB [Concomitant]

REACTIONS (5)
  - CARDIOMYOPATHY [None]
  - CONDITION AGGRAVATED [None]
  - DYSPNOEA [None]
  - SPINAL COMPRESSION FRACTURE [None]
  - URINARY TRACT INFECTION [None]
